FAERS Safety Report 6250685-2 (Version None)
Quarter: 2009Q2

REPORT INFORMATION
  Report Type: 
  Country: None (occurrence: None)
  Receive Date: 20090630
  Receipt Date: 20090605
  Transmission Date: 20091009
  Serious: Yes (Death, Other)
  Sender: FDA-Public Use
  Company Number: PL-MEDIMMUNE-MEDI-0008435

PATIENT
  Sex: Male
  Weight: 6.01 kg

DRUGS (5)
  1. SYNAGIS [Suspect]
     Indication: BRONCHOPULMONARY DYSPLASIA
     Route: 030
     Dates: start: 20081222, end: 20090420
  2. SYNAGIS [Suspect]
     Route: 030
     Dates: start: 20081222
  3. SYNAGIS [Suspect]
     Route: 030
     Dates: start: 20090126
  4. SYNAGIS [Suspect]
     Route: 030
     Dates: start: 20090218
  5. SYNAGIS [Suspect]
     Route: 030
     Dates: start: 20090323

REACTIONS (6)
  - BRONCHOPULMONARY DYSPLASIA [None]
  - CARDIOPULMONARY FAILURE [None]
  - COR PULMONALE [None]
  - PNEUMONIA BACTERIAL [None]
  - PNEUMONIA VIRAL [None]
  - PULMONARY HYPERTENSION [None]
